FAERS Safety Report 7559858-X (Version None)
Quarter: 2011Q2

REPORT INFORMATION
  Report Type: 
  Country: None (occurrence: None)
  Receive Date: 20110609
  Receipt Date: 20110526
  Transmission Date: 20111010
  Serious: Yes (Other)
  Sender: FDA-Public Use
  Company Number: 2011028682

PATIENT
  Age: 65 Year
  Sex: Female
  Weight: 74.8435 kg

DRUGS (22)
  1. HIZENTRA [Suspect]
  2. XYZAL [Concomitant]
  3. MULTIVITAMIN (DAILY MULTIVITAMIN) [Concomitant]
  4. PRILOSEC [Concomitant]
  5. CALCIUM (CALCIUM) [Concomitant]
  6. SPIRONOLACONTE (SPIRONOLACTONE) [Concomitant]
  7. MEDROL [Concomitant]
  8. MUCINEX (GAUIFENESIN) [Concomitant]
  9. LEVOTHYROXINE SODIUM [Concomitant]
  10. SINGULAIR [Concomitant]
  11. SERTRALINE HYDROCHLORIDE [Concomitant]
  12. HIZENTRA [Suspect]
  13. ROPINIROLE [Concomitant]
  14. HIZENTRA [Suspect]
     Indication: CHRONIC SINUSITIS
     Dosage: SEE IMAGE
     Route: 058
     Dates: start: 20110329
  15. HIZENTRA [Suspect]
     Indication: IMMUNODEFICIENCY COMMON VARIABLE
     Dosage: SEE IMAGE
     Route: 058
     Dates: start: 20110329
  16. HIZENTRA [Suspect]
     Indication: CHRONIC SINUSITIS
     Dosage: SEE IMAGE
     Route: 058
     Dates: start: 20110510
  17. HIZENTRA [Suspect]
     Indication: IMMUNODEFICIENCY COMMON VARIABLE
     Dosage: SEE IMAGE
     Route: 058
     Dates: start: 20110510
  18. HIZENTRA [Suspect]
     Indication: CHRONIC SINUSITIS
     Dosage: SEE IMAGE
     Route: 058
     Dates: start: 20110510
  19. HIZENTRA [Suspect]
     Indication: IMMUNODEFICIENCY COMMON VARIABLE
     Dosage: SEE IMAGE
     Route: 058
     Dates: start: 20110510
  20. HIZENTRA [Suspect]
     Indication: CHRONIC SINUSITIS
     Dosage: SEE IMAGE
     Route: 058
     Dates: start: 20110510
  21. HIZENTRA [Suspect]
     Indication: IMMUNODEFICIENCY COMMON VARIABLE
     Dosage: SEE IMAGE
     Route: 058
     Dates: start: 20110510
  22. OMNARIS (CICLESONIDE) [Concomitant]

REACTIONS (2)
  - URINARY TRACT INFECTION [None]
  - INFECTION [None]
